FAERS Safety Report 5570152-9 (Version None)
Quarter: 2007Q4

REPORT INFORMATION
  Report Type: 
  Country: None (occurrence: None)
  Receive Date: 20071220
  Receipt Date: 20071211
  Transmission Date: 20080405
  Serious: Yes (Hospitalization)
  Sender: FDA-Public Use
  Company Number: US-PFIZER INC-2007104812

PATIENT
  Age: 60 Year
  Sex: Male

DRUGS (9)
  1. SUTENT [Suspect]
     Indication: PROSTATE CANCER METASTATIC
     Dosage: DAILY DOSE:50MG
  2. ATENOLOL [Concomitant]
  3. HYDROCHLOROTHIAZIDE [Concomitant]
  4. LEUPRORELIN [Concomitant]
  5. POTASSIUM CHLORIDE [Concomitant]
  6. LOPERAMIDE HCL [Concomitant]
  7. IBUPROFEN [Concomitant]
  8. VITAMIN CAP [Concomitant]
  9. MORPHINE SULFATE [Concomitant]

REACTIONS (2)
  - HYPERTHYROIDISM [None]
  - THYROIDITIS [None]
